FAERS Safety Report 16912919 (Version 2)
Quarter: 2019Q4

REPORT INFORMATION
  Report Type: Other
  Country: DE (occurrence: DE)
  Receive Date: 20191014
  Receipt Date: 20191223
  Transmission Date: 20200122
  Serious: Yes (Hospitalization, Other)
  Sender: FDA-Public Use
  Company Number: DE-LUPIN PHARMACEUTICALS INC.-2019-06494

PATIENT
  Age: 15 Year
  Sex: Male
  Weight: 77 kg

DRUGS (3)
  1. QUETIAPINE FUMARATE EXTENDED-RELEASE [Suspect]
     Active Substance: QUETIAPINE FUMARATE
     Indication: DEPRESSION
     Dosage: 50 MILLIGRAM
     Route: 048
  2. QUETIAPINE FUMARATE EXTENDED-RELEASE [Suspect]
     Active Substance: QUETIAPINE FUMARATE
     Dosage: 300 MILLIGRAM
     Route: 048
  3. RISPERIDONE. [Suspect]
     Active Substance: RISPERIDONE
     Indication: DEPRESSION
     Dosage: 0.5 MILLIGRAM
     Route: 048

REACTIONS (3)
  - Flashback [Unknown]
  - Suicidal behaviour [Unknown]
  - Product dose omission [Unknown]

NARRATIVE: CASE EVENT DATE: 20190209
